FAERS Safety Report 5259742-0 (Version None)
Quarter: 2007Q1

REPORT INFORMATION
  Report Type: 
  Country: None (occurrence: None)
  Receive Date: 20070309
  Receipt Date: 20070228
  Transmission Date: 20070707
  Serious: Yes (Hospitalization)
  Sender: FDA-Public Use
  Company Number: 2007UW04045

PATIENT
  Age: 65 Year
  Sex: Female
  Weight: 82 kg

DRUGS (12)
  1. SYMBICORT PMDI [Suspect]
     Indication: CHRONIC OBSTRUCTIVE PULMONARY DISEASE
     Dosage: 80/4.5 UG, 2 ACTUATIONS BID
     Route: 055
     Dates: start: 20060630, end: 20061231
  2. PLACEBO [Suspect]
     Dosage: 2 INHALATIONS
     Route: 055
  3. ASPIRIN [Concomitant]
     Indication: THROMBOSIS
     Route: 048
     Dates: start: 20050101
  4. ATROVENT [Concomitant]
     Indication: CHRONIC OBSTRUCTIVE PULMONARY DISEASE
     Dates: start: 19910101
  5. FELODIPINE [Concomitant]
     Indication: ARRHYTHMIA
     Route: 048
     Dates: start: 20030101
  6. COD LIVER OIL WITH VITAMIN A + D'NATURE MADE: [Concomitant]
     Route: 048
     Dates: start: 20050101
  7. MUCINEX [Concomitant]
     Indication: CHRONIC OBSTRUCTIVE PULMONARY DISEASE
     Route: 048
     Dates: start: 20020101
  8. ALEVE [Concomitant]
     Indication: CLUSTER HEADACHE
     Route: 048
  9. ALBUTEROL [Concomitant]
     Indication: CHRONIC OBSTRUCTIVE PULMONARY DISEASE
     Dates: start: 20060714
  10. OXYGEN [Concomitant]
     Indication: CHRONIC OBSTRUCTIVE PULMONARY DISEASE
     Dosage: 2 LPM
     Dates: start: 19980101
  11. CLONIDINE [Concomitant]
     Indication: HYPERTENSION
     Route: 048
     Dates: start: 20061014
  12. PREVACID [Concomitant]
     Indication: GASTROOESOPHAGEAL REFLUX DISEASE
     Route: 048
     Dates: start: 20061024

REACTIONS (1)
  - CHRONIC OBSTRUCTIVE PULMONARY DISEASE [None]
